FAERS Safety Report 7531582-9 (Version None)
Quarter: 2011Q2

REPORT INFORMATION
  Report Type: 
  Country: None (occurrence: None)
  Receive Date: 20110601
  Receipt Date: 20110516
  Transmission Date: 20111010
  Serious: Yes (Hospitalization)
  Sender: FDA-Public Use
  Company Number: DSJ-2011-09449

PATIENT
  Age: 78 Year
  Sex: Male

DRUGS (6)
  1. SLYRICA (PREGABALIN) (CAPSULE) [Suspect]
     Indication: HYPERTENSION
     Dosage: 20 MG (20 MG, 1 IN 1 D), PER ORAL
     Route: 048
     Dates: start: 20110121, end: 20110409
  2. LYRICA [Suspect]
     Indication: BACK PAIN
     Dosage: 50 MG (25 MG, 2 IN 1 D), PER ORAL
     Route: 048
     Dates: start: 20110107, end: 20110121
  3. NIVADIL (NILVADIPINE) (TABLET) [Concomitant]
  4. OLMESARTAN MEDOXOMIL [Suspect]
     Indication: BACK PAIN
     Dosage: 20 MG (20 MG 1 IN 1 D), PER ORAL
     Route: 048
     Dates: start: 20110107, end: 20110121
  5. URITOS (IMIDAFENACIN) (TABLET) [Suspect]
     Indication: HYPERTONIC BLADDER
     Dosage: 0.3 MG 90.1 MG, 3 IN 1 D), PER ORAL
     Route: 048
     Dates: start: 20110117, end: 20110121
  6. URSO 250 [Suspect]
     Indication: HEPATIC CIRRHOSIS
     Dosage: 600 MG (200 MG, 3 IN 1 D)
     Dates: start: 20100521, end: 20110409

REACTIONS (4)
  - PLATELET COUNT DECREASED [None]
  - RASH GENERALISED [None]
  - FLUSHING [None]
  - ERYTHEMA [None]
